FAERS Safety Report 9773386 (Version 4)
Quarter: 2014Q1

REPORT INFORMATION
  Report Type: Spontaneous
  Country: FR (occurrence: FR)
  Receive Date: 20131219
  Receipt Date: 20140219
  Transmission Date: 20141002
  Serious: Yes (Other)
  Sender: FDA-Public Use
  Company Number: PHHY2013FR146621

PATIENT
  Age: 35 Year
  Sex: Male

DRUGS (1)
  1. GILENYA [Suspect]
     Indication: MULTIPLE SCLEROSIS
     Dosage: 0.5 MG, QD
     Route: 048
     Dates: start: 20130405, end: 20131130

REACTIONS (9)
  - Hepatocellular injury [Unknown]
  - Gamma-glutamyltransferase increased [Unknown]
  - Alanine aminotransferase increased [Unknown]
  - Serum ferritin increased [Recovered/Resolved]
  - Thrombocytopenia [Recovering/Resolving]
  - Blood triglycerides increased [Unknown]
  - Lymphopenia [Unknown]
  - Blood cholesterol increased [Unknown]
  - Basophil count increased [Unknown]
